FAERS Safety Report 13697399 (Version 1)
Quarter: 2017Q2

REPORT INFORMATION
  Report Type: Report from Study
  Country: IT (occurrence: IT)
  Receive Date: 20170628
  Receipt Date: 20170628
  Transmission Date: 20170830
  Serious: Yes (Hospitalization)
  Sender: FDA-Public Use
  Company Number: IT-MYLANLABS-2017M1037418

PATIENT

DRUGS (3)
  1. KETOROLAC [Suspect]
     Active Substance: KETOROLAC\KETOROLAC TROMETHAMINE
     Indication: SCLERODERMA
     Dosage: 30MG
     Route: 030
  2. TIZANIDINE. [Concomitant]
     Active Substance: TIZANIDINE
     Indication: SCLERODERMA
     Dosage: 4MG
     Route: 030
  3. BETAMETHASONE. [Interacting]
     Active Substance: BETAMETHASONE
     Indication: SCLERODERMA
     Dosage: 4MG
     Route: 030

REACTIONS (3)
  - Drug interaction [Recovering/Resolving]
  - Incorrect drug administration duration [Recovering/Resolving]
  - Melaena [Recovering/Resolving]
